FAERS Safety Report 5115422-3 (Version None)
Quarter: 2006Q3

REPORT INFORMATION
  Report Type: 
  Country: None (occurrence: None)
  Receive Date: 20060921
  Receipt Date: 20060912
  Transmission Date: 20061208
  Serious: Yes (Other)
  Sender: FDA-Public Use
  Company Number: HQWYE586512SEP06

PATIENT
  Age: 66 Year
  Sex: Male

DRUGS (6)
  1. INDERAL [Suspect]
     Indication: SUPRAVENTRICULAR TACHYCARDIA
     Dosage: SEE IMAGE
     Route: 048
     Dates: start: 19751101, end: 19760701
  2. INDERAL [Suspect]
     Indication: SUPRAVENTRICULAR TACHYCARDIA
     Dosage: SEE IMAGE
     Route: 048
     Dates: start: 19760701
  3. PRACTOLOL (PRACTOLOL, ) [Suspect]
     Indication: SUPRAVENTRICULAR TACHYCARDIA
     Dosage: 90 MG 1X PER 1 DAY, ORAL
     Route: 048
     Dates: start: 19731101, end: 19751101
  4. PRACTOLOL (PRACTOLOL, ) [Suspect]
     Indication: SUPRAVENTRICULAR TACHYCARDIA
     Dosage: 90 MG 1X PER 1 DAY, ORAL
     Route: 048
     Dates: start: 19760710, end: 19760712
  5. DIAZEPAM [Concomitant]
  6. METOCLOPRAMIDE [Concomitant]

REACTIONS (3)
  - INTESTINAL OBSTRUCTION [None]
  - PERITONITIS SCLEROSING [None]
  - ULCERATIVE KERATITIS [None]
